FAERS Safety Report 6338017-2 (Version None)
Quarter: 2009Q3

REPORT INFORMATION
  Report Type: 
  Country: None (occurrence: None)
  Receive Date: 20090902
  Receipt Date: 20090828
  Transmission Date: 20100115
  Serious: Yes (Other)
  Sender: FDA-Public Use
  Company Number: GB-PFIZER INC-2009240022

PATIENT

DRUGS (2)
  1. SUTENT [Suspect]
  2. AMIODARONE [Concomitant]
     Dosage: 10 MG, UNK

REACTIONS (2)
  - ATRIAL FIBRILLATION [None]
  - SUPRAVENTRICULAR TACHYCARDIA [None]
